FAERS Safety Report 17858230 (Version 2)
Quarter: 2020Q2

REPORT INFORMATION
  Report Type: Report from Study
  Country: None (occurrence: US)
  Receive Date: 20200604
  Receipt Date: 20200605
  Transmission Date: 20200714
  Serious: No
  Sender: FDA-Public Use
  Company Number: US-US WORLDMEDS, LLC-USW201904-000847

PATIENT
  Age: 63 Year
  Sex: Male
  Weight: 95.25 kg

DRUGS (3)
  1. APOKYN [Suspect]
     Active Substance: APOMORPHINE HYDROCHLORIDE
     Route: 058
     Dates: start: 20170717
  2. APOKYN [Suspect]
     Active Substance: APOMORPHINE HYDROCHLORIDE
     Indication: PARKINSON^S DISEASE
     Route: 058
     Dates: start: 20170720
  3. CARBIDOPA LEVODOPA [Concomitant]
     Active Substance: CARBIDOPA\LEVODOPA

REACTIONS (6)
  - Freezing phenomenon [Recovered/Resolved]
  - Dyskinesia [Recovered/Resolved]
  - Fall [Recovered/Resolved]
  - Contusion [Recovered/Resolved]
  - Peripheral coldness [Recovered/Resolved]
  - Dizziness [Recovered/Resolved]

NARRATIVE: CASE EVENT DATE: 20190422
